FAERS Safety Report 8077497-1 (Version None)
Quarter: 2012Q1

REPORT INFORMATION
  Report Type: 
  Country: None (occurrence: None)
  Receive Date: 20120127
  Receipt Date: 20120123
  Transmission Date: 20120608
  Serious: Yes (Hospitalization)
  Sender: FDA-Public Use
  Company Number: US-B.I. PHARMACEUTICALS,INC./RIDGEFIELD-2011-BP-27680BP

PATIENT
  Sex: Female
  Weight: 47.63 kg

DRUGS (8)
  1. ATACAND [Concomitant]
  2. PRADAXA [Suspect]
     Indication: ATRIAL FIBRILLATION
     Dosage: 300 MG
     Route: 048
     Dates: start: 20110520
  3. BETAPACE [Concomitant]
  4. VYTORIN [Concomitant]
  5. NORVASC [Concomitant]
  6. SOTALOL HCL [Concomitant]
     Indication: HYPERTENSION
  7. PREDNISONE TAB [Concomitant]
     Indication: ARTHRITIS
     Dosage: START 30MG/TAPER TO OFF
     Dates: start: 20110501, end: 20110701
  8. DIOVAN [Concomitant]
     Indication: HYPERTENSION

REACTIONS (14)
  - HYPOTENSION [None]
  - EPISTAXIS [None]
  - ATRIAL FIBRILLATION [None]
  - THROMBOCYTOPENIA [None]
  - MELAENA [None]
  - CONFUSIONAL STATE [None]
  - NAUSEA [None]
  - FATIGUE [None]
  - STEROID WITHDRAWAL SYNDROME [None]
  - ACUTE MYOCARDIAL INFARCTION [None]
  - ANAEMIA [None]
  - DEHYDRATION [None]
  - ASTHENIA [None]
  - PETECHIAE [None]
